FAERS Safety Report 10297067 (Version 5)
Quarter: 2014Q4

REPORT INFORMATION
  Report Type: Report from Study
  Country: US (occurrence: US)
  Receive Date: 20140711
  Receipt Date: 20141110
  Transmission Date: 20150528
  Serious: Yes (Hospitalization, Other)
  Sender: FDA-Public Use
  Company Number: US-ACTELION-A-NJ2013-90531

PATIENT
  Age: 62 Year
  Sex: Female

DRUGS (6)
  1. OPSUMIT [Suspect]
     Active Substance: MACITENTAN
     Indication: PULMONARY ARTERIAL HYPERTENSION
     Dosage: 10 MG, UNK
     Route: 048
     Dates: start: 20140530
  2. VELETRI [Suspect]
     Active Substance: EPOPROSTENOL
     Indication: PULMONARY ARTERIAL HYPERTENSION
     Dosage: 37 NG/KG, UNK
     Route: 042
  3. OPSUMIT [Suspect]
     Active Substance: MACITENTAN
     Dosage: UNK
     Route: 048
     Dates: start: 20140617
  4. VELETRI [Suspect]
     Active Substance: EPOPROSTENOL
     Dosage: 31 NG/KG, PER MIN
     Route: 042
     Dates: start: 20131023
  5. VELETRI [Suspect]
     Active Substance: EPOPROSTENOL
     Dosage: 27 NG/KG, PER MIN
     Route: 042
  6. ADCIRCA [Concomitant]
     Active Substance: TADALAFIL

REACTIONS (17)
  - Vomiting [Unknown]
  - Pain in extremity [Unknown]
  - Flushing [Unknown]
  - Disorientation [Unknown]
  - Nausea [Unknown]
  - Catheter site pruritus [Unknown]
  - Liver function test abnormal [Unknown]
  - Pain [Unknown]
  - Catheterisation cardiac [Unknown]
  - Mental status changes [Not Recovered/Not Resolved]
  - Terminal state [Unknown]
  - Fluid overload [Unknown]
  - Catheter site haemorrhage [Unknown]
  - Diarrhoea [Unknown]
  - Muscle spasms [Unknown]
  - Right ventricular failure [Unknown]
  - Headache [Unknown]

NARRATIVE: CASE EVENT DATE: 20131024
